FAERS Safety Report 10102789 (Version 2)
Quarter: 2014Q2

REPORT INFORMATION
  Report Type: Other
  Country: US (occurrence: US)
  Receive Date: 20140424
  Receipt Date: 20140609
  Transmission Date: 20141212
  Serious: Yes (Other)
  Sender: FDA-Public Use
  Company Number: US-GSKPPD-2014GSK000115

PATIENT
  Age: 64 Year
  Sex: Male
  Weight: 111.68 kg

DRUGS (5)
  1. AVANDIA [Suspect]
     Indication: DIABETES MELLITUS
     Dosage: DATES OF AVANDIA USE COULD NOT BE CONFIRMED IN RECORDS REVIEWED.
     Route: 048
  2. FUROSEMIDE [Concomitant]
     Route: 048
  3. NORVASC [Concomitant]
  4. ENALAPRIL [Concomitant]
  5. COREG [Concomitant]
     Route: 048

REACTIONS (2)
  - Cerebrovascular accident [None]
  - Ischaemic cardiomyopathy [None]
